FAERS Safety Report 4939395-9 (Version None)
Quarter: 2006Q1

REPORT INFORMATION
  Report Type: 
  Country: None (occurrence: None)
  Receive Date: 20060306
  Receipt Date: 20060217
  Transmission Date: 20060701
  Serious: Yes (Hospitalization)
  Sender: FDA-Public Use
  Company Number: CIP06000369

PATIENT
  Age: 76 Year
  Sex: Female

DRUGS (4)
  1. ACTONEL [Suspect]
     Indication: OSTEOPOROSIS PROPHYLAXIS
     Dosage: 35 MG ONCE WEEKLY, ORAL
     Route: 048
     Dates: start: 20041025
  2. CALCIUM(CALCIUM) CHEWABLE TABLET [Suspect]
     Indication: OSTEOPOROSIS PROPHYLAXIS
     Dosage: 1000 MG DAILY, ORAL
     Route: 048
     Dates: start: 20041025
  3. VITAMIN D [Suspect]
     Indication: OSTEOPOROSIS PROPHYLAXIS
     Dosage: 400 IU DAILY, ORAL
     Route: 048
     Dates: start: 20041025
  4. ARIMIDEX [Suspect]
     Indication: BREAST CANCER
     Dosage: 1 MG DAILY, ORAL
     Route: 048
     Dates: start: 20041025

REACTIONS (4)
  - ABDOMINAL PAIN [None]
  - ANORECTAL DISORDER [None]
  - CONSTIPATION [None]
  - OEDEMA MUCOSAL [None]
